FAERS Safety Report 22758293 (Version 4)
Quarter: 2024Q2

REPORT INFORMATION
  Report Type: Spontaneous
  Country: PK (occurrence: PK)
  Receive Date: 20230727
  Receipt Date: 20240529
  Transmission Date: 20240715
  Serious: Yes (Other)
  Sender: FDA-Public Use
  Company Number: PK-PFIZER INC-PV202300036381

PATIENT
  Age: 35 Year
  Sex: Female
  Weight: 73 kg

DRUGS (13)
  1. ENBREL [Suspect]
     Active Substance: BENZYL ALCOHOL\ETANERCEPT
     Indication: Rheumatoid arthritis
     Dosage: UNK, WEEKLY
     Route: 065
     Dates: start: 20220422
  2. ENBREL [Suspect]
     Active Substance: BENZYL ALCOHOL\ETANERCEPT
     Dosage: 50 MG, EVERY 10 DAYS
     Route: 058
  3. ENBREL [Suspect]
     Active Substance: BENZYL ALCOHOL\ETANERCEPT
     Dosage: 50 MG, WEEKLY
     Route: 058
     Dates: start: 202307
  4. PANADOL EXTRA [Concomitant]
     Active Substance: ACETAMINOPHEN\CAFFEINE
     Indication: Product used for unknown indication
     Dosage: 1-1-1
     Route: 065
  5. NAPROXEN [Concomitant]
     Active Substance: NAPROXEN
     Indication: Product used for unknown indication
     Dosage: 1-0-1
  6. HYDROXYCHLOROQUINE SULFATE [Concomitant]
     Active Substance: HYDROXYCHLOROQUINE SULFATE
     Indication: Product used for unknown indication
     Dosage: 1-0-1
  7. Nocid [Concomitant]
     Indication: Product used for unknown indication
     Dosage: 1-0-0
  8. Vitrum [Concomitant]
     Indication: Product used for unknown indication
     Dosage: 1-0-0
     Route: 065
  9. ACECLOFENAC [Concomitant]
     Active Substance: ACECLOFENAC
     Indication: Pain
     Dosage: UNK UNK, AS NEEDED (1-0-1)
     Route: 065
  10. DEXTOP [Concomitant]
     Indication: Product used for unknown indication
     Dosage: AT MORNING BEFORE BREAKFAST
  11. REBAMIPIDE [Concomitant]
     Active Substance: REBAMIPIDE
     Indication: Gastrointestinal disorder
     Dosage: AT MORNING AND EVENING FOR STOMATCH
  12. OXYCLOR [Concomitant]
     Indication: Product used for unknown indication
     Dosage: AT MORNING AND EVENING
  13. IBUPROFEN [Concomitant]
     Active Substance: IBUPROFEN
     Indication: Product used for unknown indication
     Dosage: 1-0-1, AS PER NEEDED
     Route: 065

REACTIONS (6)
  - Polyarthritis [Unknown]
  - Hypoaesthesia [Unknown]
  - Off label use [Unknown]
  - Paraesthesia [Unknown]
  - Swelling [Unknown]
  - Tenderness [Unknown]
